FAERS Safety Report 9494794 (Version 1)
Quarter: 2013Q3

REPORT INFORMATION
  Report Type: Spontaneous
  Country: US (occurrence: US)
  Receive Date: 20130903
  Receipt Date: 20130903
  Transmission Date: 20140515
  Serious: No
  Sender: FDA-Public Use
  Company Number: US-PFIZER INC-2013250862

PATIENT
  Sex: Female

DRUGS (3)
  1. TETRACYCLINE HCL [Suspect]
  2. METRONIDAZOLE [Suspect]
  3. CODEINE [Suspect]

REACTIONS (1)
  - Drug hypersensitivity [Unknown]
